FAERS Safety Report 7170789-X (Version None)
Quarter: 2010Q4

REPORT INFORMATION
  Report Type: 
  Country: None (occurrence: None)
  Receive Date: 20101214
  Receipt Date: 20101214
  Transmission Date: 20110411
  Serious: Yes (Other)
  Sender: FDA-Public Use
  Company Number: None

PATIENT
  Age: 66 Year
  Sex: Male

DRUGS (1)
  1. CHLORHEXIDINE GLUCONATE [Suspect]

REACTIONS (2)
  - ANAPHYLACTIC REACTION [None]
  - DOCUMENTED HYPERSENSITIVITY TO ADMINISTERED DRUG [None]
